FAERS Safety Report 10519765 (Version 1)
Quarter: 2014Q4

REPORT INFORMATION
  Report Type: Spontaneous
  Country: US (occurrence: US)
  Receive Date: 20141015
  Receipt Date: 20141015
  Transmission Date: 20150528
  Serious: Yes (Other)
  Sender: FDA-Public Use
  Company Number: US-BAYER-2014-151534

PATIENT
  Sex: Male
  Weight: 86 kg

DRUGS (3)
  1. MAGNEVIST [Suspect]
     Active Substance: GADOPENTETATE DIMEGLUMINE
     Indication: FACIAL SPASM
     Dosage: 20 ML, ONCE
     Route: 042
     Dates: start: 20140910, end: 20140910
  2. DOXYLAMINE SUCCINATE [Concomitant]
     Active Substance: DOXYLAMINE SUCCINATE
     Indication: PREMEDICATION
     Dosage: 12.5 MG, ONCE
     Route: 048
  3. MAGNEVIST [Suspect]
     Active Substance: GADOPENTETATE DIMEGLUMINE
     Indication: NUCLEAR MAGNETIC RESONANCE IMAGING BRAIN

REACTIONS (2)
  - Injection site pain [Recovered/Resolved]
  - Venous injury [None]

NARRATIVE: CASE EVENT DATE: 20140910
